FAERS Safety Report 19298106 (Version 1)
Quarter: 2021Q2

REPORT INFORMATION
  Report Type: Report from Study
  Country: HU (occurrence: HU)
  Receive Date: 20210525
  Receipt Date: 20210525
  Transmission Date: 20210717
  Serious: Yes (Other)
  Sender: FDA-Public Use
  Company Number: HU-UCBSA-2021023323

PATIENT

DRUGS (1)
  1. LEVETIRACETAM. [Suspect]
     Active Substance: LEVETIRACETAM
     Indication: EPILEPSY
     Dosage: DAILY DOSE RANGING 500?4500 MG

REACTIONS (5)
  - Dizziness [Unknown]
  - Irritability [Unknown]
  - Paradoxical drug reaction [Unknown]
  - Somnolence [Unknown]
  - Seizure [Unknown]
